FAERS Safety Report 5608139-X (Version None)
Quarter: 2008Q1

REPORT INFORMATION
  Report Type: 
  Country: None (occurrence: None)
  Receive Date: 20080130
  Receipt Date: 20080121
  Transmission Date: 20080703
  Serious: Yes (Death, Other)
  Sender: FDA-Public Use
  Company Number: US-PURDUE-USA_2007_0030291

PATIENT
  Age: 21 Year
  Sex: Female
  Weight: 159 kg

DRUGS (6)
  1. NAPROXEN [Suspect]
     Indication: DRUG USE FOR UNKNOWN INDICATION
     Dosage: UNK, UNK
  2. ACETAMINOPHEN [Suspect]
     Indication: DRUG USE FOR UNKNOWN INDICATION
     Dosage: UNK, UNK
  3. OXYCODONE HYDROCHLORIDE [Suspect]
     Indication: DRUG ABUSE
     Dosage: UNK MG, UNK
  4. METHADONE HCL [Suspect]
     Indication: DRUG ABUSE
  5. FENTANYL [Suspect]
     Indication: DRUG ABUSE
  6. METAMFETAMINE HYDROCHLORIDE [Suspect]
     Indication: DRUG ABUSE
     Dosage: UNK, UNK

REACTIONS (3)
  - DYSPNOEA [None]
  - MULTIPLE DRUG OVERDOSE [None]
  - SUBSTANCE ABUSE [None]
